FAERS Safety Report 5793478-2 (Version None)
Quarter: 2008Q2

REPORT INFORMATION
  Report Type: 
  Country: None (occurrence: None)
  Receive Date: 20080627
  Receipt Date: 20080617
  Transmission Date: 20081010
  Serious: Yes (Hospitalization)
  Sender: FDA-Public Use
  Company Number: BR-JNJFOC-20080604252

PATIENT
  Age: 29 Year
  Sex: Female

DRUGS (2)
  1. ORTHO EVRA [Suspect]
     Indication: CONTRACEPTION
     Route: 062
  2. ORTHO EVRA [Suspect]
     Route: 062

REACTIONS (6)
  - APPLICATION SITE HYPERSENSITIVITY [None]
  - CYST [None]
  - HAEMORRHAGIC CYST [None]
  - PHARMACEUTICAL PRODUCT COMPLAINT [None]
  - SUPEROVULATION [None]
  - WRONG TECHNIQUE IN DRUG USAGE PROCESS [None]
